FAERS Safety Report 5421874-1 (Version None)
Quarter: 2007Q3

REPORT INFORMATION
  Report Type: 
  Country: None (occurrence: None)
  Receive Date: 20070817
  Receipt Date: 20070802
  Transmission Date: 20080115
  Serious: Yes (Hospitalization)
  Sender: FDA-Public Use
  Company Number: 2005RR-00894

PATIENT
  Age: 68 Year
  Sex: Female

DRUGS (5)
  1. PREDNISOLONE [Suspect]
     Indication: ASTHMA
     Dosage: 20 MG, QD
  2. METFORMIN HYDROCHLORIDE [Suspect]
  3. UNIPHYL [Suspect]
  4. MONTELUKAST SODIUM [Suspect]
     Indication: ASTHMA
     Dosage: 10 MG, QD
  5. FLIXOTIDE (FLUCITASONE) [Suspect]

REACTIONS (2)
  - ESCHERICHIA INFECTION [None]
  - PERITONITIS BACTERIAL [None]
